FAERS Safety Report 9471772 (Version 1)
Quarter: 2013Q3

REPORT INFORMATION
  Report Type: Spontaneous
  Country: US (occurrence: None)
  Receive Date: 20130819
  Receipt Date: 20130819
  Transmission Date: 20140515
  Serious: Yes (Other)
  Sender: FDA-Public Use
  Company Number: 2013-3353

PATIENT
  Sex: Male
  Weight: 22.8 kg

DRUGS (1)
  1. INCRELEX [Suspect]
     Indication: INSULIN-LIKE GROWTH FACTOR
     Dosage: 160 MG/KG (80 MG/KG, 2 IN 1
     Dates: start: 20061031, end: 20071106

REACTIONS (4)
  - Malocclusion [None]
  - Speech disorder [None]
  - Facial asymmetry [None]
  - Jaw disorder [None]
